FAERS Safety Report 24648026 (Version 1)
Quarter: 2024Q4

REPORT INFORMATION
  Report Type: Spontaneous
  Country: US (occurrence: US)
  Receive Date: 20241121
  Receipt Date: 20241121
  Transmission Date: 20250114
  Serious: Yes (Other)
  Sender: MYLAN
  Company Number: US-MYLANLABS-2024M1094665

PATIENT
  Sex: Female

DRUGS (2)
  1. TYRVAYA [Suspect]
     Active Substance: VARENICLINE TARTRATE
     Indication: Dry eye
     Dosage: (1 SPRAY ONCE IN EACH NOSTRIL)
     Route: 045
     Dates: start: 20241008, end: 20241008
  2. CEQUA [Concomitant]
     Active Substance: CYCLOSPORINE
     Indication: Dry eye
     Dosage: UNK
     Route: 065

REACTIONS (8)
  - Rash [Recovered/Resolved]
  - Anxiety [Recovered/Resolved]
  - Headache [Recovered/Resolved]
  - Fatigue [Recovered/Resolved]
  - Abdominal discomfort [Recovered/Resolved]
  - Chest pain [Recovered/Resolved]
  - Dyspnoea [Unknown]
  - Drug hypersensitivity [Unknown]
